FAERS Safety Report 6618120-X (Version None)
Quarter: 2010Q1

REPORT INFORMATION
  Report Type: 
  Country: None (occurrence: None)
  Receive Date: 20100308
  Receipt Date: 20100225
  Transmission Date: 20100710
  Serious: Yes (Other)
  Sender: FDA-Public Use
  Company Number: GB-AMGEN-US396018

PATIENT
  Sex: Female

DRUGS (5)
  1. ENBREL [Suspect]
     Indication: DRUG USE FOR UNKNOWN INDICATION
     Dosage: 25 MG, FREQUENCY UNKNOWN
     Route: 058
  2. METHOTREXATE [Concomitant]
     Dosage: UNKNOWN
     Route: 065
  3. DICLOFENAC [Concomitant]
     Dosage: UNKNOWN
     Route: 065
  4. CARBAMAZEPINE [Concomitant]
     Dosage: UNKNOWN
     Route: 065
  5. DIAMORPHINE [Concomitant]
     Dosage: UNKNOWN
     Route: 065

REACTIONS (2)
  - INFECTION [None]
  - OCCIPITAL NEURALGIA [None]
